FAERS Safety Report 8611632-9 (Version None)
Quarter: 2012Q3

REPORT INFORMATION
  Report Type: 
  Country: None (occurrence: None)
  Receive Date: 20120822
  Receipt Date: 20120813
  Transmission Date: 20120928
  Serious: Yes (Hospitalization, Other)
  Sender: FDA-Public Use
  Company Number: JP-ROCHE-1009741

PATIENT
  Sex: Female
  Weight: 46 kg

DRUGS (10)
  1. ACTEMRA [Suspect]
     Indication: RHEUMATOID ARTHRITIS
     Route: 041
     Dates: start: 20110711, end: 20110101
  2. PREDNISOLONE [Concomitant]
     Indication: RHEUMATOID ARTHRITIS
     Route: 048
     Dates: start: 20110708, end: 20110714
  3. PREDNISOLONE [Concomitant]
     Route: 048
     Dates: start: 20110912, end: 20111016
  4. ACTEMRA [Suspect]
     Route: 041
     Dates: start: 20110101
  5. RHEUMATREX [Suspect]
     Indication: RHEUMATOID ARTHRITIS
     Route: 048
     Dates: end: 20110716
  6. PREDNISOLONE [Concomitant]
     Route: 048
     Dates: start: 20111017
  7. PREDNISOLONE [Concomitant]
     Route: 048
     Dates: start: 20110715, end: 20110911
  8. LEVOTHYROXINE SODIUM [Concomitant]
     Indication: HYPOTHYROIDISM
     Route: 048
  9. RISEDRONATE SODIUM [Concomitant]
     Indication: OSTEOPOROSIS
     Route: 048
  10. URSO 250 [Concomitant]
     Indication: LIVER DISORDER
     Route: 048

REACTIONS (3)
  - PLATELET COUNT DECREASED [None]
  - WHITE BLOOD CELL COUNT DECREASED [None]
  - ANAEMIA [None]
